FAERS Safety Report 10642715 (Version 1)
Quarter: 2014Q4

REPORT INFORMATION
  Report Type: Spontaneous
  Country: GB (occurrence: GB)
  Receive Date: 20141210
  Receipt Date: 20141210
  Transmission Date: 20150529
  Serious: Yes (Death)
  Sender: FDA-Public Use
  Company Number: GB-RANBAXY-2014RR-89967

PATIENT
  Age: 83 Year
  Sex: Female

DRUGS (1)
  1. CO-AMOXICLAV [Suspect]
     Active Substance: AMOXICILLIN\CLAVULANIC ACID
     Indication: PRODUCT USED FOR UNKNOWN INDICATION
     Dosage: UNK
     Route: 065
     Dates: start: 20130831

REACTIONS (4)
  - Cardiac arrest [Fatal]
  - Hypoxia [Fatal]
  - Anaphylactic reaction [Fatal]
  - Drug prescribing error [Fatal]

NARRATIVE: CASE EVENT DATE: 20130831
